FAERS Safety Report 4884167-7 (Version None)
Quarter: 2006Q1

REPORT INFORMATION
  Report Type: 
  Country: None (occurrence: None)
  Receive Date: 20060118
  Receipt Date: 20060116
  Transmission Date: 20060701
  Serious: Yes (Other)
  Sender: FDA-Public Use
  Company Number: US-MERCK-0601USA01760

PATIENT
  Age: 83 Year
  Sex: Female

DRUGS (10)
  1. FOSAMAX [Suspect]
     Route: 048
     Dates: start: 20060102
  2. AMIODARONE [Concomitant]
     Route: 065
     Dates: start: 20010101
  3. LEVOXYL [Concomitant]
     Route: 065
     Dates: start: 20050101
  4. NORVASC [Concomitant]
     Route: 065
     Dates: start: 20050101
  5. PREMARIN [Concomitant]
     Route: 065
     Dates: start: 19760101
  6. LOPRESSOR [Concomitant]
     Route: 065
     Dates: start: 19960101
  7. KLOR-CON [Concomitant]
     Route: 065
     Dates: start: 20010101
  8. ANTIVERT [Concomitant]
     Route: 065
     Dates: start: 20020101
  9. AMBIEN [Concomitant]
     Route: 065
     Dates: start: 20050101
  10. ATARAX [Concomitant]
     Route: 065
     Dates: start: 20050101

REACTIONS (2)
  - HIP FRACTURE [None]
  - SHOULDER PAIN [None]
